FAERS Safety Report 6913243-X (Version None)
Quarter: 2010Q3

REPORT INFORMATION
  Report Type: 
  Country: None (occurrence: None)
  Receive Date: 20100809
  Receipt Date: 20100728
  Transmission Date: 20110219
  Serious: Yes (Hospitalization, Other)
  Sender: FDA-Public Use
  Company Number: US-BIOGENIDEC-2009BI038365

PATIENT
  Age: 58 Year
  Sex: Female
  Weight: 79 kg

DRUGS (12)
  1. AVONEX [Suspect]
     Indication: MULTIPLE SCLEROSIS
     Route: 030
     Dates: start: 19980101, end: 20030830
  2. AVONEX [Suspect]
     Route: 030
     Dates: start: 20030830, end: 20090401
  3. AVONEX [Suspect]
     Route: 030
     Dates: start: 20091210
  4. PHENOBARBITAL [Concomitant]
     Indication: CONVULSION
  5. TOFRANIL [Concomitant]
     Indication: URINARY RETENTION
  6. CELEBREX [Concomitant]
     Indication: OSTEOARTHRITIS
  7. SKELAXIN [Concomitant]
     Indication: FIBROMYALGIA
  8. CATAPRES [Concomitant]
     Indication: HYPERTENSION
  9. TIAZAC [Concomitant]
     Indication: HYPERTENSION
  10. GLIPIZIDE [Concomitant]
     Indication: DIABETES MELLITUS
  11. PRILOSEC [Concomitant]
     Indication: GASTROOESOPHAGEAL REFLUX DISEASE
  12. BACLOFEN [Concomitant]
     Indication: MUSCLE SPASTICITY

REACTIONS (9)
  - CARCINOID TUMOUR OF THE STOMACH [None]
  - CHRONIC OBSTRUCTIVE PULMONARY DISEASE [None]
  - DIARRHOEA [None]
  - EXTRANODAL MARGINAL ZONE B-CELL LYMPHOMA (MALT TYPE) [None]
  - GASTROINTESTINAL DISORDER [None]
  - MUSCULOSKELETAL PAIN [None]
  - NEPHROLITHIASIS [None]
  - PNEUMONIA [None]
  - SINUSITIS [None]
